FAERS Safety Report 6478718-9 (Version None)
Quarter: 2009Q4

REPORT INFORMATION
  Report Type: 
  Country: None (occurrence: None)
  Receive Date: 20091207
  Receipt Date: 20091129
  Transmission Date: 20100525
  Serious: Yes (Hospitalization)
  Sender: FDA-Public Use
  Company Number: US-ELI_LILLY_AND_COMPANY-US200911002856

PATIENT
  Age: 80 Year
  Sex: Female

DRUGS (1)
  1. FORTEO [Suspect]
     Dates: start: 20090501

REACTIONS (3)
  - CARDIAC STRESS TEST ABNORMAL [None]
  - INJECTION SITE ERYTHEMA [None]
  - TRANSIENT ISCHAEMIC ATTACK [None]
